FAERS Safety Report 19053157 (Version 1)
Quarter: 2021Q1

REPORT INFORMATION
  Report Type: Spontaneous
  Country: BR (occurrence: BR)
  Receive Date: 20210324
  Receipt Date: 20210324
  Transmission Date: 20210420
  Serious: Yes (Other)
  Sender: FDA-Public Use
  Company Number: NVSC2021BR065499

PATIENT
  Sex: Female

DRUGS (3)
  1. EXELON [Suspect]
     Active Substance: RIVASTIGMINE TARTRATE
     Dosage: 13.3 MG, QD (PATCH 15 (CM2), 27 MG RIVASTIGMINE BASE)
     Route: 062
     Dates: start: 202011
  2. EXELON [Suspect]
     Active Substance: RIVASTIGMINE TARTRATE
     Indication: PRODUCT USED FOR UNKNOWN INDICATION
     Dosage: 1.9 MG, QD (PATCH 4.5 (CM2), 9 MG RIVASTIGMINE BASE)
     Route: 062
  3. ENALAPRIL [Concomitant]
     Active Substance: ENALAPRIL
     Indication: PRODUCT USED FOR UNKNOWN INDICATION
     Dosage: UNK (30 YEARS AGO)
     Route: 065

REACTIONS (15)
  - Cold sweat [Recovered/Resolved]
  - Retching [Recovered/Resolved]
  - Dizziness [Unknown]
  - Blood pressure decreased [Recovered/Resolved]
  - Syncope [Unknown]
  - Nasopharyngitis [Recovered/Resolved]
  - Vomiting [Unknown]
  - Coating in mouth [Unknown]
  - Malaise [Unknown]
  - Hypotension [Unknown]
  - Cold sweat [Unknown]
  - Syncope [Recovered/Resolved]
  - Motion sickness [Unknown]
  - Malaise [Recovered/Resolved]
  - Vomiting [Recovered/Resolved]
